FAERS Safety Report 7037384-4 (Version None)
Quarter: 2010Q4

REPORT INFORMATION
  Report Type: 
  Country: None (occurrence: None)
  Receive Date: 20101011
  Receipt Date: 20101004
  Transmission Date: 20110411
  Serious: Yes (Other)
  Sender: FDA-Public Use
  Company Number: EE-PFIZER INC-2010121420

PATIENT
  Age: 27 Year
  Sex: Female
  Weight: 60 kg

DRUGS (1)
  1. DALACIN [Suspect]
     Indication: PERIODONTAL INFECTION
     Dosage: 300 MG, 3X/DAY
     Route: 048
     Dates: start: 20100921, end: 20100927

REACTIONS (8)
  - AGITATION [None]
  - DIARRHOEA [None]
  - DIZZINESS [None]
  - MALAISE [None]
  - NAUSEA [None]
  - TREMOR [None]
  - VISION BLURRED [None]
  - VOMITING [None]
